FAERS Safety Report 8439249 (Version 2)
Quarter: 2013Q2

REPORT INFORMATION
  Report Type: Spontaneous
  Country: US (occurrence: None)
  Receive Date: 20120104
  Receipt Date: 20120508
  Transmission Date: 20140414
  Serious: Yes (Other)
  Sender: FDA-Public Use
  Company Number: 2011HGS-002793

PATIENT
  Age: 46 Year
  Sex: Female
  Weight: 60.33 kg

DRUGS (19)
  1. BENLYSTA [Suspect]
     Indication: SYSTEMIC LUPUS ERYTHEMATOSUS
     Route: 041
     Dates: start: 20110402
  2. GABAPENTIN (GABAPENTIN) (GABAPENTIN) [Concomitant]
  3. PROGESTERONE (PROGESTERONE) (PROGESTERONE) [Concomitant]
  4. CITALOPRAM (CITALOPRAM) (CITALOPRAM) [Concomitant]
  5. OMEPRAZOLE (OMEPRAZOLE) (OMEPRAZOLE) [Concomitant]
  6. DOC-U-LACE (PERI-COLACE) (DOCUSATE SODIUM, CASANTHRANOL) [Concomitant]
  7. ESTRADIOL (ESTRADIOL) (ESTRADIOL) [Concomitant]
  8. HYDROCODONE (HYDROCODONE) (HYDROCODONE) [Concomitant]
  9. MORPHINE SULFATE (MORPHINE SULFATE) (MORPHINE SULFATE) [Concomitant]
  10. AMBIEN (ZOLPIDEM TARTRATE) (ZOLPIDEM TARTRATE) [Concomitant]
  11. METHOCARBAMOL (METHOCARBAMOL) (METHOCARBAMOL) [Concomitant]
  12. PREDNISONE (PREDNISONE) (PREDNISONE) [Concomitant]
  13. MOTRIN (IBUPROFEN) (IBUPROFEN) [Concomitant]
  14. PLAQUENIL (HYDROXYCHLOROQUINE PHOSPHATE) (HYDROXYCHLOROQUINE PHOSPHATE) [Concomitant]
  15. CALCITONIN (CALCITONIN) (CALCITONIN) [Concomitant]
  16. AZATHIOPRINE (AZATHIOPRINE) (AZATHIOPRINE) [Concomitant]
  17. ONDANSETRON (ONDANSETRON) (ONDANSETRON) [Concomitant]
  18. NYSTATIN (NYSTATIN) (NYSTATIN) [Concomitant]
  19. DIAZEPAM (DIAZEPAM) (DIAZEPAM) [Concomitant]

REACTIONS (4)
  - WEIGHT INCREASED [None]
  - RASH [None]
  - Mental disorder [None]
  - Depressed mood [None]
